FAERS Safety Report 6383175-7 (Version None)
Quarter: 2009Q3

REPORT INFORMATION
  Report Type: 
  Country: None (occurrence: None)
  Receive Date: 20090929
  Receipt Date: 20090914
  Transmission Date: 20100115
  Serious: Yes (Death, Hospitalization)
  Sender: FDA-Public Use
  Company Number: 2008AL004021

PATIENT
  Age: 66 Year
  Sex: Male

DRUGS (27)
  1. DIGOXIN [Suspect]
     Dosage: 0.125MG, DAILY, PO
     Route: 048
  2. LEVAQUIN [Concomitant]
  3. INSULIN [Concomitant]
  4. SYNTHROID [Concomitant]
  5. SODIUM BICARB [Concomitant]
  6. PROTONIX [Concomitant]
  7. MULTI-VITAMIN [Concomitant]
  8. FLAGYL [Concomitant]
  9. TOPROL-XL [Concomitant]
  10. RENEGEL [Concomitant]
  11. CARDIZEM [Concomitant]
  12. MEGACE [Concomitant]
  13. NEPHROCAPS [Concomitant]
  14. COREG [Concomitant]
  15. CYPROHEPTADINE [Concomitant]
  16. CLONIDINE [Concomitant]
  17. NEXIUM [Concomitant]
  18. SENSIPAR [Concomitant]
  19. ALLEGRA [Concomitant]
  20. ESMOLOL HCL [Concomitant]
  21. LABETALOL HCL [Concomitant]
  22. DOPAMINE HCL [Concomitant]
  23. HYDRALAZINE [Concomitant]
  24. PHENYLEPHRINE [Concomitant]
  25. OXYGEN [Concomitant]
  26. ROMAZICON [Concomitant]
  27. NARCAN [Concomitant]

REACTIONS (44)
  - ABDOMINAL DISCOMFORT [None]
  - ANAEMIA [None]
  - ANHEDONIA [None]
  - ANXIETY [None]
  - APNOEIC ATTACK [None]
  - ASTHENIA [None]
  - ATRIAL FIBRILLATION [None]
  - BLOOD GLUCOSE INCREASED [None]
  - BLOOD PRESSURE SYSTOLIC INCREASED [None]
  - BRADYCARDIA [None]
  - CARDIAC ARREST [None]
  - CARDIAC ENZYMES INCREASED [None]
  - COAGULOPATHY [None]
  - CONFUSIONAL STATE [None]
  - CONGESTIVE CARDIOMYOPATHY [None]
  - DEPRESSED LEVEL OF CONSCIOUSNESS [None]
  - DYSPNOEA [None]
  - EMOTIONAL DISORDER [None]
  - ERYTHEMA [None]
  - EXPOSURE TO TOXIC AGENT [None]
  - FEAR [None]
  - GENERALISED OEDEMA [None]
  - GRAFT INFECTION [None]
  - HEART RATE INCREASED [None]
  - HYPOTENSION [None]
  - HYPOTHERMIA [None]
  - HYPOXIA [None]
  - INJURY [None]
  - LOBAR PNEUMONIA [None]
  - MENTAL DISORDER [None]
  - OEDEMA PERIPHERAL [None]
  - PAIN [None]
  - PAIN IN EXTREMITY [None]
  - PROCTALGIA [None]
  - PULMONARY OEDEMA [None]
  - PYREXIA [None]
  - RENAL FAILURE CHRONIC [None]
  - RENAL OSTEODYSTROPHY [None]
  - SEPSIS [None]
  - SHOCK [None]
  - SUPERIOR VENA CAVAL STENOSIS [None]
  - TACHYCARDIA [None]
  - TREATMENT NONCOMPLIANCE [None]
  - WOUND [None]
